FAERS Safety Report 9044651 (Version 2)
Quarter: 2013Q1

REPORT INFORMATION
  Report Type: Spontaneous
  Country: US (occurrence: US)
  Receive Date: 20130130
  Receipt Date: 20130206
  Transmission Date: 20140127
  Serious: Yes (Other)
  Sender: FDA-Public Use
  Company Number: US-TEVA-383157USA

PATIENT
  Age: 72 None
  Sex: Female

DRUGS (2)
  1. PROAIR HFA [Suspect]
     Indication: ASTHMA
     Dosage: QID PRN
     Route: 055
  2. QVAR [Concomitant]
     Indication: ASTHMA
     Dosage: 4 DOSAGE FORMS DAILY; 2 PUFFS BID
     Route: 055

REACTIONS (3)
  - Asthma [Recovered/Resolved]
  - Bronchospasm [Recovered/Resolved]
  - Drug ineffective [Recovered/Resolved]
